FAERS Safety Report 9999809 (Version 3)
Quarter: 2014Q1

REPORT INFORMATION
  Report Type: Spontaneous
  Country: SE (occurrence: SE)
  Receive Date: 20140312
  Receipt Date: 20140327
  Transmission Date: 20141002
  Serious: Yes (Other)
  Sender: FDA-Public Use
  Company Number: SE-PFIZER INC-2014023659

PATIENT
  Age: 8 Year
  Sex: Male
  Weight: 20.2 kg

DRUGS (2)
  1. GENOTROPIN GOQUICK [Suspect]
     Indication: SMALL FOR DATES BABY
     Dosage: 0.6 MG, 1X/DAY
     Route: 058
     Dates: start: 20130909, end: 20140124
  2. GENOTROPIN GOQUICK [Suspect]
     Indication: PREMATURE BABY

REACTIONS (1)
  - Alopecia areata [Not Recovered/Not Resolved]
